FAERS Safety Report 21852243 (Version 2)
Quarter: 2023Q1

REPORT INFORMATION
  Report Type: Report from Study
  Country: BR (occurrence: BR)
  Receive Date: 20230112
  Receipt Date: 20230315
  Transmission Date: 20230418
  Serious: Yes (Other)
  Sender: FDA-Public Use
  Company Number: BR-002147023-NVSC2023BR005306

PATIENT
  Sex: Female

DRUGS (1)
  1. COSENTYX [Suspect]
     Active Substance: SECUKINUMAB
     Indication: Product used for unknown indication
     Dosage: UNK, (STARTED 2 YEARS AGO)
     Route: 065

REACTIONS (3)
  - Pyelonephritis [Recovered/Resolved]
  - Decreased immune responsiveness [Recovered/Resolved]
  - Back pain [Recovered/Resolved]
